FAERS Safety Report 4795378-3 (Version None)
Quarter: 2005Q4

REPORT INFORMATION
  Report Type: 
  Country: None (occurrence: None)
  Receive Date: 20051012
  Receipt Date: 20050323
  Transmission Date: 20060501
  Serious: Yes (Hospitalization)
  Sender: FDA-Public Use
  Company Number: 2005UW04572

PATIENT
  Age: 8 Year
  Sex: Female

DRUGS (2)
  1. ZOLADEX [Suspect]
     Indication: PRECOCIOUS PUBERTY
     Dosage: EVERY 2 MONTHS
     Route: 058
     Dates: start: 20020101, end: 20050307
  2. PONDOCILLIN [Concomitant]
     Route: 048

REACTIONS (8)
  - ANAPHYLACTIC REACTION [None]
  - DYSPHAGIA [None]
  - FACE OEDEMA [None]
  - FLUSHING [None]
  - OEDEMA PERIPHERAL [None]
  - STRIDOR [None]
  - URTICARIA [None]
  - WHEEZING [None]
